FAERS Safety Report 4852585-9 (Version None)
Quarter: 2005Q4

REPORT INFORMATION
  Report Type: 
  Country: None (occurrence: None)
  Receive Date: 20051125
  Receipt Date: 20050606
  Transmission Date: 20060501
  Serious: Yes (Hospitalization, Other)
  Sender: FDA-Public Use
  Company Number: 2002071388

PATIENT
  Age: 83 Year
  Sex: Female
  Weight: 53.978 kg

DRUGS (12)
  1. TIKOSYN [Suspect]
     Indication: ATRIAL FIBRILLATION
     Dosage: 250 MCG (BID), ORAL
     Route: 048
     Dates: start: 20010401, end: 20021129
  2. DILTIAZEM [Suspect]
     Indication: ATRIAL FIBRILLATION
     Dosage: 20 MG, INTRAVENOUS
     Route: 042
     Dates: start: 20021126
  3. SLOW-MAG (MAGNESIUM CHLORIDE ANHYDROUS) [Concomitant]
  4. WARFARIN [Concomitant]
  5. POTASSIUM [Concomitant]
  6. ISORDIL [Concomitant]
  7. SYNTHROID [Concomitant]
  8. ZOCOR ^NEOPHARMED^ (SIMVASTATIN) [Concomitant]
  9. LISINOPRIL [Concomitant]
  10. NEXIUM [Concomitant]
  11. LASIX [Concomitant]
  12. METOPROLOL [Concomitant]

REACTIONS (3)
  - ATRIAL FIBRILLATION [None]
  - ATRIOVENTRICULAR BLOCK [None]
  - CARDIAC FAILURE [None]
